FAERS Safety Report 6253709-1 (Version None)
Quarter: 2009Q2

REPORT INFORMATION
  Report Type: 
  Country: None (occurrence: None)
  Receive Date: 20090630
  Receipt Date: 20090617
  Transmission Date: 20091009
  Serious: Yes (Hospitalization)
  Sender: FDA-Public Use
  Company Number: 220149K09USA

PATIENT
  Age: 12 Year
  Sex: Male

DRUGS (1)
  1. SAIZEN [Suspect]
     Indication: GROWTH HORMONE DEFICIENCY
     Dosage: 1 MG, SUBCUTANEOUS
     Route: 058
     Dates: start: 20090612, end: 20090601

REACTIONS (8)
  - ABDOMINAL PAIN [None]
  - ANXIETY [None]
  - EYE SWELLING [None]
  - FLUSHING [None]
  - HYPERHIDROSIS [None]
  - LIP SWELLING [None]
  - OCULAR HYPERAEMIA [None]
  - SWOLLEN TONGUE [None]
